FAERS Safety Report 8461673-X (Version None)
Quarter: 2012Q2

REPORT INFORMATION
  Report Type: 
  Country: None (occurrence: None)
  Receive Date: 20120625
  Receipt Date: 20120621
  Transmission Date: 20120825
  Serious: Yes (Death, Other)
  Sender: FDA-Public Use
  Company Number: PHFR2012GB002977

PATIENT
  Sex: Male
  Weight: 56 kg

DRUGS (2)
  1. CLOZARIL [Suspect]
     Indication: SCHIZOPHRENIA
     Route: 048
     Dates: start: 20010701
  2. CLOZARIL [Suspect]
     Dosage: 400 MG, DAILY
     Route: 048

REACTIONS (10)
  - BRONCHOPNEUMONIA [None]
  - GASTROOESOPHAGEAL REFLUX DISEASE [None]
  - ABDOMINAL MASS [None]
  - HAEMOGLOBIN DECREASED [None]
  - HYPOPHAGIA [None]
  - GENERAL PHYSICAL CONDITION ABNORMAL [None]
  - DYSPNOEA [None]
  - BLOOD CREATININE INCREASED [None]
  - FATIGUE [None]
  - WEIGHT DECREASED [None]
